FAERS Safety Report 15700493 (Version 5)
Quarter: 2020Q1

REPORT INFORMATION
  Report Type: Report from Study
  Country: AU (occurrence: AU)
  Receive Date: 20181207
  Receipt Date: 20200207
  Transmission Date: 20200409
  Serious: Yes (Hospitalization)
  Sender: FDA-Public Use
  Company Number: AU-VERTEX PHARMACEUTICALS-2018-009062

PATIENT
  Age: 29 Year
  Sex: Male
  Weight: 60 kg

DRUGS (13)
  1. VX-659 [Suspect]
     Active Substance: BAMOCAFTOR
     Indication: CYSTIC FIBROSIS
     Dosage: 120 MG, QD
     Route: 048
     Dates: start: 20180823
  2. DORNASE ALFA. [Concomitant]
     Active Substance: DORNASE ALFA
     Dosage: 2.5 MG, QD
     Route: 055
     Dates: start: 20151030
  3. SALBUTAMOL [Concomitant]
     Active Substance: ALBUTEROL
     Dosage: 5 MG, TID
     Route: 055
  4. URSODEOXYCHOLIC ACID [Concomitant]
     Active Substance: URSODIOL
     Indication: CHOLELITHIASIS
     Dosage: 500 MG, TID
     Route: 048
     Dates: start: 20180811
  5. SODIUM CHLORIDE. [Concomitant]
     Active Substance: SODIUM CHLORIDE
     Dosage: 5 MILLILITER, BID
     Route: 055
  6. HYPERTONIC SALINE SOLUTION [Concomitant]
     Active Substance: SODIUM CHLORIDE
     Dosage: 6 %, TID
     Route: 055
     Dates: start: 2018, end: 20190111
  7. VITABDECK [Concomitant]
     Indication: MALABSORPTION
     Dosage: 2 DOSAGE FORM, QD
     Route: 048
     Dates: start: 2000
  8. SPIRIVA [Concomitant]
     Active Substance: TIOTROPIUM BROMIDE MONOHYDRATE
     Indication: CYSTIC FIBROSIS LUNG
     Dosage: 2 DOSAGE FORM, QD
     Route: 055
     Dates: start: 2016
  9. CREON [Concomitant]
     Active Substance: PANCRELIPASE AMYLASE\PANCRELIPASE LIPASE\PANCRELIPASE PROTEASE
     Indication: PANCREATIC FAILURE
     Dosage: 25000 UNITS TITRATED TO MEALS
     Route: 048
     Dates: start: 2009
  10. SYMBICORT [Concomitant]
     Active Substance: BUDESONIDE\FORMOTEROL FUMARATE DIHYDRATE
     Indication: CYSTIC FIBROSIS LUNG
     Dosage: 2 DOSAGE FORM, BID
     Route: 055
     Dates: start: 2008
  11. VX-661/VX-770 [Suspect]
     Active Substance: IVACAFTOR\TEZACAFTOR
     Indication: CYSTIC FIBROSIS
     Dosage: TEZACAFTOR 50 MG/IVACAFTOR 75 MG (MORNING), 180 MG (NIGHT)
     Route: 048
     Dates: start: 20180823
  12. ASCORBIC ACID. [Concomitant]
     Active Substance: ASCORBIC ACID
     Dosage: 1 GRAM, QD
     Route: 048
     Dates: start: 20161213
  13. MOVICOL [Concomitant]
     Active Substance: POLYETHYLENE GLYCOL 3350\POTASSIUM CHLORIDE\SODIUM BICARBONATE\SODIUM CHLORIDE
     Dosage: 2 DOSAGE FORM, PRN
     Route: 048
     Dates: start: 20181022, end: 20181102

REACTIONS (2)
  - Infective pulmonary exacerbation of cystic fibrosis [Recovered/Resolved]
  - Cholecystitis [Recovered/Resolved]

NARRATIVE: CASE EVENT DATE: 20181018
